FAERS Safety Report 8350502-0 (Version None)
Quarter: 2012Q2

REPORT INFORMATION
  Report Type: 
  Country: None (occurrence: None)
  Receive Date: 20120510
  Receipt Date: 20120504
  Transmission Date: 20120825
  Serious: Yes (Other)
  Sender: FDA-Public Use
  Company Number: US-BAYER-2012-043813

PATIENT
  Age: 63 Year
  Sex: Female
  Weight: 68.027 kg

DRUGS (3)
  1. CELEBREX [Suspect]
     Indication: MYALGIA
  2. CIPROFLOXACIN HCL [Suspect]
     Indication: CYSTITIS INTERSTITIAL
  3. CELEBREX [Suspect]
     Indication: ARTHRITIS
     Route: 048

REACTIONS (3)
  - BLOOD PRESSURE ABNORMAL [None]
  - BLADDER DISORDER [None]
  - CYSTITIS INTERSTITIAL [None]
